FAERS Safety Report 5623331-6 (Version None)
Quarter: 2008Q1

REPORT INFORMATION
  Report Type: 
  Country: None (occurrence: None)
  Receive Date: 20080212
  Receipt Date: 20080129
  Transmission Date: 20080703
  Serious: Yes (Other)
  Sender: FDA-Public Use
  Company Number: BE-BRISTOL-MYERS SQUIBB COMPANY-14071609

PATIENT
  Age: 57 Year
  Sex: Female

DRUGS (7)
  1. METFORMIN HCL [Suspect]
     Indication: INSULIN-REQUIRING TYPE 2 DIABETES MELLITUS
     Route: 048
     Dates: start: 20050428, end: 20050914
  2. NOVOLOG MIX 70/30 [Suspect]
     Indication: INSULIN-REQUIRING TYPE 2 DIABETES MELLITUS
     Route: 058
     Dates: start: 20050428, end: 20050914
  3. L-THYROXINE [Concomitant]
     Dates: start: 20030328
  4. CRESTOR [Concomitant]
     Dates: start: 20040729
  5. COZAAR [Concomitant]
  6. AROMASIN [Concomitant]
  7. LASIX [Concomitant]
     Dates: start: 20050526

REACTIONS (1)
  - RENAL IMPAIRMENT [None]
